FAERS Safety Report 18970766 (Version 2)
Quarter: 2021Q1

REPORT INFORMATION
  Report Type: Spontaneous
  Country: BR (occurrence: BR)
  Receive Date: 20210304
  Receipt Date: 20210316
  Transmission Date: 20210420
  Serious: Yes (Death, Hospitalization, Other)
  Sender: FDA-Public Use
  Company Number: BR-PURDUE-USA-2021-0223358

PATIENT
  Age: 75 Year
  Sex: Male
  Weight: 45 kg

DRUGS (12)
  1. TRAMADOL. [Suspect]
     Active Substance: TRAMADOL
     Indication: PAIN
     Dosage: 100 MG, Q8H
     Route: 048
  2. NON?PMN MORPHINE SULFATE [Suspect]
     Active Substance: MORPHINE SULFATE
     Dosage: UNK [CONTINUOUS INFUSION/CONTINUOUS PARENTERAL]
     Route: 041
     Dates: start: 2020
  3. TRAMADOL HYDROCHLORIDE. [Suspect]
     Active Substance: TRAMADOL HYDROCHLORIDE
     Indication: PAIN
     Dosage: 100 MG, Q8H
     Route: 048
  4. METAMIZOLE [Concomitant]
     Active Substance: METAMIZOLE
     Indication: PAIN
     Dosage: 1000 MG, Q6H
     Route: 042
     Dates: start: 2020
  5. OMEPRAZOLE. [Concomitant]
     Active Substance: OMEPRAZOLE
     Dosage: 40 MG, DAILY
     Route: 048
  6. PARACETAMOL [Concomitant]
     Active Substance: ACETAMINOPHEN
     Indication: PAIN
     Dosage: 500 MG, Q4H
     Dates: start: 2020
  7. TRAMADOL. [Suspect]
     Active Substance: TRAMADOL
     Dosage: 100 MG, Q8H [AT THE ADMISSION, THE PATIENT WAS TREATED WITH TRAMADOL 100 MG INTRAVENOUSLY EVERY 8 ]
     Route: 042
  8. NON?PMN MORPHINE SULFATE [Suspect]
     Active Substance: MORPHINE SULFATE
     Indication: PAIN
     Dosage: UNK [CONTINUOUS INFUSION/CONTINUOUS PARENTERAL]
     Route: 041
     Dates: start: 2020
  9. NON?PMN MORPHINE SULFATE [Suspect]
     Active Substance: MORPHINE SULFATE
     Dosage: 5 MG, UNK
     Route: 042
     Dates: start: 2020
  10. TRAMADOL HYDROCHLORIDE. [Suspect]
     Active Substance: TRAMADOL HYDROCHLORIDE
     Dosage: UNK [SELF?MEDICATION WITH TRAMADOL SEVERAL TIMES A DAY OWING TO PAIN]
     Route: 065
  11. BROMOPRIDE [Concomitant]
     Active Substance: BROMOPRIDE
     Dosage: 10 MG, Q12H
     Route: 048
  12. TRAMADOL. [Suspect]
     Active Substance: TRAMADOL
     Dosage: UNK [SELF?MEDICATION WITH TRAMADOL SEVERAL TIMES A DAY OWING TO PAIN]
     Route: 048

REACTIONS (9)
  - Toxicity to various agents [Fatal]
  - Gastrointestinal motility disorder [Not Recovered/Not Resolved]
  - Impaired gastric emptying [Unknown]
  - Respiratory failure [Fatal]
  - Intentional product misuse [Unknown]
  - Metabolic acidosis [Unknown]
  - Miosis [Unknown]
  - Depressed level of consciousness [Unknown]
  - Constipation [Not Recovered/Not Resolved]

NARRATIVE: CASE EVENT DATE: 2020
